FAERS Safety Report 13190332 (Version 2)
Quarter: 2017Q4

REPORT INFORMATION
  Report Type: Spontaneous
  Country: JP (occurrence: JP)
  Receive Date: 20170206
  Receipt Date: 20171219
  Transmission Date: 20180320
  Serious: Yes (Hospitalization, Other)
  Sender: FDA-Public Use
  Company Number: JP-MALLINCKRODT-T201505164

PATIENT
  Age: 63 Year
  Sex: Male
  Weight: 65 kg

DRUGS (44)
  1. METHADONE [Suspect]
     Active Substance: METHADONE HYDROCHLORIDE
     Dosage: 5 MG (15 MG DAILY DOSE)
     Route: 048
     Dates: start: 20160112, end: 20160314
  2. LOXOPROFEN SODIUM [Concomitant]
     Active Substance: LOXOPROFEN SODIUM
     Indication: ANALGESIC THERAPY
     Dosage: 180 MG
     Route: 048
     Dates: start: 20151027
  3. ISOVORIN [Concomitant]
     Active Substance: LEUCOVORIN CALCIUM
     Indication: PRODUCT USED FOR UNKNOWN INDICATION
     Dosage: 350 MG
     Route: 051
     Dates: start: 20151102, end: 20151102
  4. LIDOCAINE. [Concomitant]
     Active Substance: LIDOCAINE
     Indication: ANALGESIC THERAPY
     Dosage: 10 ML
     Route: 051
     Dates: start: 20151111, end: 20151111
  5. METHADONE [Suspect]
     Active Substance: METHADONE HYDROCHLORIDE
     Indication: CANCER PAIN
     Dosage: 10 MG (30 MG DAILY DOSE)
     Route: 048
     Dates: start: 20150914, end: 20150929
  6. LONSURF [Concomitant]
     Active Substance: TIPIRACIL HYDROCHLORIDE\TRIFLURIDINE
     Indication: PRODUCT USED FOR UNKNOWN INDICATION
     Dosage: 120 MG
     Route: 048
     Dates: end: 20150916
  7. DEXART [Concomitant]
     Active Substance: DEXAMETHASONE SODIUM PHOSPHATE
     Indication: PRODUCT USED FOR UNKNOWN INDICATION
     Dosage: 6.6 MG
     Route: 051
     Dates: start: 20151102, end: 20151102
  8. DEXART [Concomitant]
     Active Substance: DEXAMETHASONE SODIUM PHOSPHATE
     Dosage: 6.6 MG
     Route: 051
     Dates: start: 20160202, end: 20160202
  9. POLARAMINE [Concomitant]
     Active Substance: DEXCHLORPHENIRAMINE MALEATE
     Dosage: 5 MG
     Route: 051
     Dates: start: 20160202, end: 20160202
  10. ALOXI [Concomitant]
     Active Substance: PALONOSETRON HYDROCHLORIDE
     Dosage: 0.75 MG
     Route: 051
     Dates: start: 20151117, end: 20151117
  11. ISOVORIN [Concomitant]
     Active Substance: LEUCOVORIN CALCIUM
     Dosage: 350 MG
     Route: 051
     Dates: start: 20160202, end: 20160202
  12. 5-FU [Concomitant]
     Active Substance: FLUOROURACIL
     Dosage: 2100 MG
     Route: 051
     Dates: start: 20151102, end: 20151103
  13. HEPARIN SODIUM. [Concomitant]
     Active Substance: HEPARIN SODIUM
     Dosage: 2500 IU
     Route: 051
     Dates: start: 20160202, end: 20160203
  14. METHADONE [Suspect]
     Active Substance: METHADONE HYDROCHLORIDE
     Dosage: 35 MG DAILY DOSE
     Route: 048
     Dates: start: 20150929, end: 20151227
  15. LYRICA [Concomitant]
     Active Substance: PREGABALIN
     Indication: ANALGESIC THERAPY
     Dosage: 150 MG
     Route: 048
     Dates: end: 20150918
  16. LEVOFLOXACIN. [Concomitant]
     Active Substance: LEVOFLOXACIN
     Indication: PRODUCT USED FOR UNKNOWN INDICATION
     Dosage: 500 MG
     Route: 048
     Dates: start: 20150918, end: 20150925
  17. NEXIUM [Concomitant]
     Active Substance: ESOMEPRAZOLE MAGNESIUM
     Indication: PRODUCT USED FOR UNKNOWN INDICATION
     Dosage: 20 MG
     Route: 048
     Dates: start: 20151110
  18. POLARAMINE [Concomitant]
     Active Substance: DEXCHLORPHENIRAMINE MALEATE
     Dosage: 5 MG
     Route: 051
     Dates: start: 20151117, end: 20151117
  19. GLUCOSE [Concomitant]
     Active Substance: DEXTROSE
     Indication: PRODUCT USED FOR UNKNOWN INDICATION
     Dosage: 1000 ML
     Route: 051
     Dates: start: 20151102, end: 20151102
  20. DEXART [Concomitant]
     Active Substance: DEXAMETHASONE SODIUM PHOSPHATE
     Dosage: 6.6 MG
     Route: 051
     Dates: start: 20151117, end: 20151117
  21. ALOXI [Concomitant]
     Active Substance: PALONOSETRON HYDROCHLORIDE
     Indication: PRODUCT USED FOR UNKNOWN INDICATION
     Dosage: 0.75 MG
     Route: 051
     Dates: start: 20151102, end: 20151102
  22. ELPLAT [Concomitant]
     Active Substance: OXALIPLATIN
     Dosage: 140 MG
     Route: 051
     Dates: start: 20160202, end: 20160202
  23. 5-FU [Concomitant]
     Active Substance: FLUOROURACIL
     Dosage: 700 MG
     Route: 051
     Dates: start: 20160202, end: 20160202
  24. METHADONE [Suspect]
     Active Substance: METHADONE HYDROCHLORIDE
     Dosage: 10 MG (30 MG DAILY DOSE)
     Route: 048
     Dates: start: 20151228, end: 20160111
  25. OXYNORM [Concomitant]
     Active Substance: OXYCODONE HYDROCHLORIDE
     Indication: ANALGESIC THERAPY
     Dosage: 10 MG, PRN
     Route: 048
     Dates: start: 20150913
  26. LYRICA [Concomitant]
     Active Substance: PREGABALIN
     Dosage: 50 MG
     Route: 048
     Dates: start: 20160301
  27. GLUCOSE [Concomitant]
     Active Substance: DEXTROSE
     Dosage: 600 ML
     Route: 051
     Dates: start: 20160202, end: 20160202
  28. POLARAMINE [Concomitant]
     Active Substance: DEXCHLORPHENIRAMINE MALEATE
     Indication: PRODUCT USED FOR UNKNOWN INDICATION
     Dosage: 5 MG
     Route: 051
     Dates: start: 20151102, end: 20151102
  29. ISOVORIN [Concomitant]
     Active Substance: LEUCOVORIN CALCIUM
     Dosage: 350 MG
     Route: 051
     Dates: start: 20151117, end: 20151117
  30. 5-FU [Concomitant]
     Active Substance: FLUOROURACIL
     Dosage: 700 MG
     Route: 051
     Dates: start: 20151117, end: 20151117
  31. HEPARIN SODIUM. [Concomitant]
     Active Substance: HEPARIN SODIUM
     Dosage: 2500 IU
     Route: 051
     Dates: start: 20151117, end: 20151118
  32. METHADONE [Suspect]
     Active Substance: METHADONE HYDROCHLORIDE
     Dosage: 20 MG DAILY DOSE
     Route: 048
     Dates: start: 20160315
  33. ELPLAT [Concomitant]
     Active Substance: OXALIPLATIN
     Indication: PRODUCT USED FOR UNKNOWN INDICATION
     Dosage: 140 MG
     Route: 051
     Dates: start: 20151102, end: 20151102
  34. ISOTONIC SODIUM CHLORIDE SOLUTION [Concomitant]
     Active Substance: SODIUM CHLORIDE
     Dosage: 65 ML
     Route: 051
     Dates: start: 20151117, end: 20151117
  35. 5-FU [Concomitant]
     Active Substance: FLUOROURACIL
     Dosage: 2100 MG
     Route: 051
     Dates: start: 20151117, end: 20151118
  36. GLUCOSE [Concomitant]
     Active Substance: DEXTROSE
     Dosage: 1000 ML
     Route: 051
     Dates: start: 20151117, end: 20151117
  37. ALOXI [Concomitant]
     Active Substance: PALONOSETRON HYDROCHLORIDE
     Dosage: 0.75 MG
     Route: 051
     Dates: start: 20160202, end: 20160202
  38. 5-FU [Concomitant]
     Active Substance: FLUOROURACIL
     Dosage: 2100 MG
     Route: 051
     Dates: start: 20160202, end: 20160202
  39. HEPARIN SODIUM. [Concomitant]
     Active Substance: HEPARIN SODIUM
     Indication: PRODUCT USED FOR UNKNOWN INDICATION
     Dosage: 2500 IU
     Route: 051
     Dates: start: 20151102, end: 20151103
  40. LINOLOSAL [Concomitant]
     Active Substance: BETAMETHASONE SODIUM PHOSPHATE
     Indication: ANALGESIC THERAPY
     Dosage: 2 MG
     Route: 051
     Dates: start: 20151111, end: 20151111
  41. ELPLAT [Concomitant]
     Active Substance: OXALIPLATIN
     Dosage: 140 MG
     Route: 051
     Dates: start: 20151117, end: 20151117
  42. ISOTONIC SODIUM CHLORIDE SOLUTION [Concomitant]
     Active Substance: SODIUM CHLORIDE
     Indication: PRODUCT USED FOR UNKNOWN INDICATION
     Dosage: 65 ML
     Route: 051
     Dates: start: 20151102, end: 20151102
  43. ISOTONIC SODIUM CHLORIDE SOLUTION [Concomitant]
     Active Substance: SODIUM CHLORIDE
     Dosage: 200 ML
     Route: 051
     Dates: start: 20151211, end: 20151217
  44. 5-FU [Concomitant]
     Active Substance: FLUOROURACIL
     Indication: PRODUCT USED FOR UNKNOWN INDICATION
     Dosage: 700 MG
     Route: 051
     Dates: start: 20151102, end: 20151102

REACTIONS (12)
  - Constipation [Recovering/Resolving]
  - Dehydration [Recovered/Resolved]
  - Pneumonia pneumococcal [Recovering/Resolving]
  - Pyrexia [Recovered/Resolved]
  - Somnolence [Recovered/Resolved]
  - Neutrophil count decreased [Recovered/Resolved]
  - Cough [Unknown]
  - Pneumonia [Recovering/Resolving]
  - Pneumonia [Recovered/Resolved]
  - Skin erosion [Not Recovered/Not Resolved]
  - Dehydration [Recovered/Resolved]
  - Nausea [Recovering/Resolving]

NARRATIVE: CASE EVENT DATE: 20150915
